FAERS Safety Report 18194817 (Version 1)
Quarter: 2020Q3

REPORT INFORMATION
  Report Type: Spontaneous
  Country: FR (occurrence: FR)
  Receive Date: 20200826
  Receipt Date: 20200826
  Transmission Date: 20201103
  Serious: Yes (Other)
  Sender: FDA-Public Use
  Company Number: FR-BEH-2020121628

PATIENT
  Age: 8 Year
  Sex: Female
  Weight: 27 kg

DRUGS (8)
  1. PRIVIGEN [Suspect]
     Active Substance: HUMAN IMMUNOGLOBULIN G
     Indication: EPILEPSY
     Dosage: 0.3 GRAM PER KILOGRAM
     Route: 041
     Dates: start: 2017
  2. SABRIL [Suspect]
     Active Substance: VIGABATRIN
     Indication: EPILEPSY
     Dosage: 500 MG/0/1250 MG
     Route: 048
     Dates: start: 20170815
  3. RITUXIMAB. [Suspect]
     Active Substance: RITUXIMAB
     Indication: EPILEPSY
     Dosage: 375 MILLIGRAM/SQ. METER (CYCLICAL)
     Route: 041
     Dates: start: 201811
  4. FYCOMPA [Suspect]
     Active Substance: PERAMPANEL
     Indication: EPILEPSY
     Dosage: 4 MILLIGRAM, QD
     Route: 048
     Dates: start: 20180802
  5. INOVELON [Suspect]
     Active Substance: RUFINAMIDE
     Indication: EPILEPSY
     Dosage: 50MG/0/100MG
     Route: 048
     Dates: start: 201804, end: 202006
  6. TALOXA [Suspect]
     Active Substance: FELBAMATE
     Indication: EPILEPSY
     Dosage: 4ML/0/5ML
     Route: 048
     Dates: start: 201908
  7. BACTRIM [Suspect]
     Active Substance: SULFAMETHOXAZOLE\TRIMETHOPRIM
     Indication: ANTIBIOTIC PROPHYLAXIS
     Dosage: 600 MILLIGRAM, QD
     Route: 048
     Dates: start: 201811
  8. SOLUPRED [METHYLPREDNISOLONE SODIUM SUCCINATE] [Suspect]
     Active Substance: METHYLPREDNISOLONE SODIUM SUCCINATE
     Indication: PREMEDICATION
     Dosage: UNK
     Route: 048
     Dates: start: 201811

REACTIONS (3)
  - Product use in unapproved indication [Unknown]
  - Precocious puberty [Not Recovered/Not Resolved]
  - No adverse event [Unknown]

NARRATIVE: CASE EVENT DATE: 202003
